FAERS Safety Report 12529163 (Version 1)
Quarter: 2016Q3

REPORT INFORMATION
  Report Type: Spontaneous
  Country: FR (occurrence: FR)
  Receive Date: 20160705
  Receipt Date: 20160705
  Transmission Date: 20161109
  Serious: Yes (Hospitalization, Other)
  Sender: FDA-Public Use
  Company Number: FR-ALLERGAN-1661851US

PATIENT
  Age: 54 Year
  Sex: Female

DRUGS (1)
  1. MESALAMINE UNK [Suspect]
     Active Substance: MESALAMINE
     Indication: COLITIS ULCERATIVE
     Dosage: 250 MG, TID
     Route: 048

REACTIONS (2)
  - Lung disorder [Recovered/Resolved]
  - Drug hypersensitivity [Recovered/Resolved]
